FAERS Safety Report 24567985 (Version 4)
Quarter: 2024Q4

REPORT INFORMATION
  Report Type: Report from Study
  Country: PH (occurrence: PH)
  Receive Date: 20241031
  Receipt Date: 20241230
  Transmission Date: 20250114
  Serious: Yes (Other)
  Sender: EMD SERONO INC
  Company Number: PH-Merck Healthcare KGaA-2024057065

PATIENT
  Age: 3 Year
  Sex: Male

DRUGS (1)
  1. SAIZEN [Suspect]
     Active Substance: SOMATROPIN
     Indication: Growth hormone deficiency
     Dosage: CARTRIDGE
     Dates: start: 20241014

REACTIONS (4)
  - Bronchial hyperreactivity [Recovered/Resolved]
  - Asthma [Unknown]
  - Pneumonia [Recovered/Resolved]
  - Nasopharyngitis [Unknown]

NARRATIVE: CASE EVENT DATE: 20241024
